FAERS Safety Report 15828726 (Version 1)
Quarter: 2019Q1

REPORT INFORMATION
  Report Type: Spontaneous
  Country: US (occurrence: US)
  Receive Date: 20190115
  Receipt Date: 20190115
  Transmission Date: 20190417
  Serious: No
  Sender: FDA-Public Use
  Company Number: US-ALLERGAN-1804169US

PATIENT
  Age: 62 Year
  Sex: Male

DRUGS (8)
  1. LUMIGAN [Concomitant]
     Active Substance: BIMATOPROST
     Indication: GLAUCOMA
     Dosage: UNK
  2. RESTASIS [Suspect]
     Active Substance: CYCLOSPORINE
     Dosage: UNK, BID
     Route: 047
     Dates: start: 201801
  3. RESTASIS [Suspect]
     Active Substance: CYCLOSPORINE
     Indication: DRY EYE
     Dosage: UNK, BID
     Route: 047
     Dates: start: 201801
  4. COSOPT [Concomitant]
     Active Substance: DORZOLAMIDE HYDROCHLORIDE\TIMOLOL MALEATE
     Indication: GLAUCOMA
     Dosage: UNK
  5. RESTASIS [Suspect]
     Active Substance: CYCLOSPORINE
     Dosage: UNK, BID
     Route: 047
     Dates: start: 201801
  6. RESTASIS [Suspect]
     Active Substance: CYCLOSPORINE
     Dosage: UNK, BID
     Route: 047
     Dates: start: 201801
  7. DORZOLAMIDE [Concomitant]
     Active Substance: DORZOLAMIDE
     Indication: GLAUCOMA
     Dosage: UNK
  8. SIMVASTATIN. [Concomitant]
     Active Substance: SIMVASTATIN
     Indication: BLOOD CHOLESTEROL INCREASED
     Dosage: UNK

REACTIONS (5)
  - Cataract [Unknown]
  - Eye disorder [Unknown]
  - Intentional product misuse [Unknown]
  - Product container issue [Unknown]
  - Incorrect dose administered [Unknown]

NARRATIVE: CASE EVENT DATE: 201801
